FAERS Safety Report 9934376 (Version 2)
Quarter: 2014Q1

REPORT INFORMATION
  Report Type: Spontaneous
  Country: CH (occurrence: CH)
  Receive Date: 20140228
  Receipt Date: 20140328
  Transmission Date: 20141002
  Serious: Yes (Life-Threatening, Hospitalization)
  Sender: FDA-Public Use
  Company Number: CH-INCYTE CORPORATION-2014IN000485

PATIENT
  Sex: 0

DRUGS (3)
  1. JAKAVI [Suspect]
     Indication: MYELOFIBROSIS
     Dosage: 20 MG, BID
     Route: 048
     Dates: start: 20140128, end: 20140206
  2. MAGNESIUM [Concomitant]
     Dosage: UNK
     Dates: start: 20130319, end: 20140206
  3. ASS [Concomitant]
     Dosage: UNK
     Dates: start: 20110923, end: 20140206

REACTIONS (9)
  - Haematoma [Recovering/Resolving]
  - Haemorrhage [Not Recovered/Not Resolved]
  - Procedural haemorrhage [Recovering/Resolving]
  - Post procedural haemorrhage [Recovering/Resolving]
  - Haemodynamic instability [Unknown]
  - Hypovolaemia [Unknown]
  - Hyperkalaemia [Unknown]
  - Renal failure [Unknown]
  - International normalised ratio increased [Unknown]
